FAERS Safety Report 5397842-5 (Version None)
Quarter: 2007Q3

REPORT INFORMATION
  Report Type: 
  Country: None (occurrence: None)
  Receive Date: 20070726
  Receipt Date: 20070627
  Transmission Date: 20080115
  Serious: No
  Sender: FDA-Public Use
  Company Number: US-JNJFOC-20070700413

PATIENT
  Sex: Female

DRUGS (3)
  1. INVEGA [Suspect]
     Indication: ACUTE PSYCHOSIS
     Route: 048
  2. INVEGA [Suspect]
     Indication: DELUSION
     Route: 048
  3. DEPAKOTE [Concomitant]

REACTIONS (2)
  - MYALGIA [None]
  - SEDATION [None]
